FAERS Safety Report 8732212 (Version 2)
Quarter: 2012Q4

REPORT INFORMATION
  Report Type: 
  Country: US (occurrence: US)
  Receive Date: 20120820
  Receipt Date: 20120927
  Transmission Date: 20130627
  Serious: Yes (Hospitalization, Other)
  Sender: FDA-Public Use
  Company Number: US-ROCHE-1061201

PATIENT
  Age: 15 Year
  Sex: Female
  Weight: 54.48 kg

DRUGS (2)
  1. ACCUTANE [Suspect]
     Indication: ACNE
     Route: 048
     Dates: start: 20020329, end: 200209
  2. YASMIN [Concomitant]

REACTIONS (9)
  - Crohn^s disease [Unknown]
  - Inflammatory bowel disease [Unknown]
  - Depression [Unknown]
  - Intestinal obstruction [Unknown]
  - Enterovesical fistula [Unknown]
  - Chapped lips [Unknown]
  - Headache [Unknown]
  - Blood triglycerides increased [Unknown]
  - Irritable bowel syndrome [Not Recovered/Not Resolved]
